FAERS Safety Report 5322546-4 (Version None)
Quarter: 2007Q1

REPORT INFORMATION
  Report Type: 
  Country: None (occurrence: None)
  Receive Date: 20070220
  Receipt Date: 20061206
  Transmission Date: 20070707
  Serious: No
  Sender: FDA-Public Use
  Company Number: TPA2006A02204

PATIENT
  Age: 57 Year
  Sex: Female
  Weight: 58.9676 kg

DRUGS (4)
  1. ROZEREM [Suspect]
     Indication: INSOMNIA
     Dosage: PER ORAL
     Route: 048
     Dates: end: 20061101
  2. LEXAPRO [Concomitant]
  3. IBANDRONATE SODIUM (IBANDRONATE SODIUM) [Concomitant]
  4. CHOLESTYRAMINE RESIN (COLESTYRAMINE) [Concomitant]

REACTIONS (1)
  - DRUG INEFFECTIVE [None]
